FAERS Safety Report 15257846 (Version 1)
Quarter: 2018Q3

REPORT INFORMATION
  Report Type: Spontaneous
  Country: US (occurrence: US)
  Receive Date: 20180718
  Receipt Date: 20180718
  Transmission Date: 20181010
  Serious: Yes (Hospitalization)
  Sender: FDA-Public Use
  Company Number: None

PATIENT
  Age: 47 Year
  Sex: Male

DRUGS (16)
  1. ADCIRCA [Suspect]
     Active Substance: TADALAFIL
     Indication: PULMONARY ARTERIAL HYPERTENSION
     Route: 048
     Dates: start: 20160520
  2. ALLOPURINOL 300MG [Concomitant]
     Active Substance: ALLOPURINOL
  3. FUROSEMIDE 80MG [Concomitant]
  4. ZOLPIDEM [Concomitant]
     Active Substance: ZOLPIDEM\ZOLPIDEM TARTRATE
  5. ALPRAZOLAM 1MG [Concomitant]
     Active Substance: ALPRAZOLAM
  6. OMEPRAZOLE 40MG [Concomitant]
     Active Substance: OMEPRAZOLE
  7. VIRT?VITE PLUS [Concomitant]
     Active Substance: ASCORBIC ACID\BIOTIN\CALCIUM PANTOTHENATE\CYANOCOBALAMIN\FOLIC ACID\NIACINAMIDE\PYRIDOXINE HYDROCHLORIDE\RIBOFLAVIN\THIAMINE MONONITRATE
  8. MORPHINE SULFATE ER 15MG [Concomitant]
     Active Substance: MORPHINE SULFATE
  9. NOVOLOG [Concomitant]
     Active Substance: INSULIN ASPART
  10. ASPIRIN 81MG [Concomitant]
     Active Substance: ASPIRIN
  11. ATORVASTATIN 20MG [Concomitant]
     Active Substance: ATORVASTATIN
  12. ESCITALOPRAM [Concomitant]
     Active Substance: ESCITALOPRAM OXALATE
  13. HYDROMORPHONE 4MG [Concomitant]
  14. METOPROLOL SUCCINATE 50MG ER [Concomitant]
  15. POTASSIUM CL 20MEQ [Concomitant]
  16. VANCOMYCIN 125MG [Concomitant]

REACTIONS (1)
  - Renal disorder [None]

NARRATIVE: CASE EVENT DATE: 20180625
